FAERS Safety Report 24603068 (Version 1)
Quarter: 2024Q4

REPORT INFORMATION
  Report Type: Spontaneous
  Country: FR (occurrence: FR)
  Receive Date: 20241111
  Receipt Date: 20241111
  Transmission Date: 20250115
  Serious: Yes (Hospitalization)
  Sender: NOVARTIS
  Company Number: None

PATIENT
  Age: 79 Year
  Sex: Female
  Weight: 66 kg

DRUGS (10)
  1. TAFINLAR [Suspect]
     Active Substance: DABRAFENIB MESYLATE
     Indication: Bronchial carcinoma
     Dosage: 150 MG, Q12H
     Route: 048
     Dates: start: 20240131, end: 20240229
  2. TAFINLAR [Suspect]
     Active Substance: DABRAFENIB MESYLATE
     Dosage: 100 MG, Q12H
     Route: 048
     Dates: start: 20240301, end: 20240912
  3. MEKINIST [Suspect]
     Active Substance: TRAMETINIB DIMETHYL SULFOXIDE
     Indication: Bronchial carcinoma
     Dosage: 2 MG, QD
     Route: 048
     Dates: start: 20240131, end: 20240414
  4. MEKINIST [Suspect]
     Active Substance: TRAMETINIB DIMETHYL SULFOXIDE
     Dosage: 1.5 MG, QD
     Route: 048
     Dates: start: 20240415, end: 20240912
  5. CARBIMAZOLE [Suspect]
     Active Substance: CARBIMAZOLE
     Indication: Hyperthyroidism
     Dosage: 5 MG, QD
     Route: 048
     Dates: start: 20240605, end: 20240724
  6. VEMURAFENIB [Suspect]
     Active Substance: VEMURAFENIB
     Indication: Hairy cell leukaemia
     Dosage: 1 DOSAGE FORM, QD
     Route: 048
     Dates: start: 2023, end: 202406
  7. BISOPROLOL [Concomitant]
     Active Substance: BISOPROLOL\BISOPROLOL FUMARATE
     Indication: Atrial fibrillation
     Dosage: 2.5 MG, QD
     Route: 048
  8. FLECAINIDE [Concomitant]
     Active Substance: FLECAINIDE
     Indication: Atrial fibrillation
     Dosage: 100 MG, QD
     Route: 048
     Dates: end: 202410
  9. INDAPAMIDE\PERINDOPRIL [Concomitant]
     Active Substance: INDAPAMIDE\PERINDOPRIL
     Indication: Hypertension
     Dosage: 1 DOSAGE FORM, QD
     Route: 048
  10. ELIQUIS [Concomitant]
     Active Substance: APIXABAN
     Indication: Atrial fibrillation
     Dosage: 5 MG, Q12H (1-0-1-0)
     Route: 048

REACTIONS (1)
  - Panniculitis [Not Recovered/Not Resolved]

NARRATIVE: CASE EVENT DATE: 20240615
